FAERS Safety Report 7899630-4 (Version None)
Quarter: 2011Q4

REPORT INFORMATION
  Report Type: 
  Country: None (occurrence: None)
  Receive Date: 20111107
  Receipt Date: 20110916
  Transmission Date: 20120403
  Serious: No
  Sender: FDA-Public Use
  Company Number: US-AMGEN-USASP2011048149

PATIENT
  Age: 61 Year
  Sex: Male
  Weight: 83.9 kg

DRUGS (5)
  1. BENADRYL [Concomitant]
  2. FOLIC ACID [Concomitant]
  3. LORTAB [Concomitant]
  4. ENBREL [Suspect]
     Indication: RHEUMATOID ARTHRITIS
     Dosage: 50 MG, QWK
  5. METHOTREXATE [Concomitant]

REACTIONS (3)
  - INJECTION SITE REACTION [None]
  - INJECTION SITE RASH [None]
  - INJECTION SITE PRURITUS [None]
